FAERS Safety Report 5831084-1 (Version None)
Quarter: 2008Q3

REPORT INFORMATION
  Report Type: 
  Country: None (occurrence: None)
  Receive Date: 20080801
  Receipt Date: 20080401
  Transmission Date: 20090109
  Serious: No
  Sender: FDA-Public Use
  Company Number: US-BRISTOL-MYERS SQUIBB COMPANY-14133334

PATIENT
  Age: 62 Year
  Sex: Male
  Weight: 98 kg

DRUGS (6)
  1. COUMADIN [Suspect]
     Indication: AORTIC VALVE REPLACEMENT
     Dosage: 1 DOSAGE FORM = 15MG-25MG. DOSE INCREASED TO 10 MG 3 DAYS A WEEK. 7.5 MG 4 DAYS A WEEK.
     Dates: start: 19840101
  2. CRESTOR [Concomitant]
  3. TIZANIDINE HCL [Concomitant]
  4. ATENOLOL [Concomitant]
  5. VITAMIN B COMPLEX [Concomitant]
  6. KLOR-CON [Concomitant]

REACTIONS (1)
  - INTERNATIONAL NORMALISED RATIO ABNORMAL [None]
